FAERS Safety Report 12300655 (Version 1)
Quarter: 2016Q2

REPORT INFORMATION
  Report Type: Spontaneous
  Country: CA (occurrence: CA)
  Receive Date: 20160425
  Receipt Date: 20160425
  Transmission Date: 20160815
  Serious: Yes (Other)
  Sender: FDA-Public Use
  Company Number: CA-PFIZER INC-2016223660

PATIENT

DRUGS (1)
  1. CHILDRENS ADVIL [Suspect]
     Active Substance: IBUPROFEN
     Indication: PYREXIA
     Dosage: UNK

REACTIONS (8)
  - Drug administration error [Unknown]
  - Abdominal pain upper [Unknown]
  - Headache [Unknown]
  - Hallucination [Unknown]
  - Drug ineffective [Unknown]
  - Vomiting [Unknown]
  - Poor quality drug administered [Unknown]
  - Product quality issue [Unknown]
